FAERS Safety Report 9200540 (Version 1)
Quarter: 2013Q1

REPORT INFORMATION
  Report Type: Spontaneous
  Country: GB (occurrence: GB)
  Receive Date: 20130329
  Receipt Date: 20130329
  Transmission Date: 20140127
  Serious: Yes (Hospitalization)
  Sender: FDA-Public Use
  Company Number: GB-PFIZER INC-HQ0724226JAN2000

PATIENT
  Age: 11 Year
  Sex: Male
  Weight: 36.3 kg

DRUGS (1)
  1. MOTRIN [Suspect]
     Indication: TOOTHACHE
     Dosage: 400 MG, 1X/DAY
     Route: 048
     Dates: start: 19991112, end: 19991112

REACTIONS (4)
  - Coagulopathy [Recovered/Resolved]
  - Haematuria [Recovered/Resolved]
  - Haematochezia [Recovered/Resolved]
  - Haemorrhage [Recovered/Resolved]
